FAERS Safety Report 8170859-3 (Version None)
Quarter: 2012Q1

REPORT INFORMATION
  Report Type: 
  Country: None (occurrence: None)
  Receive Date: 20120106
  Receipt Date: 20110602
  Transmission Date: 20120608
  Serious: Yes (Hospitalization, Other)
  Sender: FDA-Public Use
  Company Number: US-005864

PATIENT
  Age: 34 Year
  Sex: Female
  Weight: 72.3 kg

DRUGS (14)
  1. BETAMETHASONE [Concomitant]
  2. CELEBREX [Concomitant]
  3. MULTIHANCE [Suspect]
     Indication: NUCLEAR MAGNETIC RESONANCE IMAGING BRAIN
     Dosage: 15ML ONCE INTRAVENOUS (NOT OTHERWISE SPECIFIED)
     Route: 042
     Dates: start: 20110124, end: 20110124
  4. MULTIHANCE [Suspect]
     Indication: CONVULSION
     Dosage: 15ML ONCE INTRAVENOUS (NOT OTHERWISE SPECIFIED)
     Route: 042
     Dates: start: 20110124, end: 20110124
  5. ATENOLOL-CHLORTHALIDONE (ATENOLOL;CHLORTALIDONE) [Concomitant]
  6. VICODIN [Concomitant]
  7. FAMOTIDINE [Concomitant]
  8. LYRICA [Concomitant]
  9. OXYBUTYNIN CHLORIDE (OXYBUTYNIN HYDROCHLORIDE) [Concomitant]
  10. PREVACID [Concomitant]
  11. MYSOLINE [Concomitant]
  12. VIMPAT [Concomitant]
  13. CITALOPRAM HYDROBROMIDE [Concomitant]
  14. KLONOPIN [Concomitant]

REACTIONS (2)
  - GRAND MAL CONVULSION [None]
  - VOMITING [None]
